FAERS Safety Report 18253083 (Version 1)
Quarter: 2020Q3

REPORT INFORMATION
  Report Type: Spontaneous
  Country: US (occurrence: US)
  Receive Date: 20200910
  Receipt Date: 20200910
  Transmission Date: 20201103
  Serious: No
  Sender: FDA-Public Use
  Company Number: US-SA-2020SA246002

PATIENT

DRUGS (1)
  1. ALLEGRA [Suspect]
     Active Substance: FEXOFENADINE HYDROCHLORIDE
     Dosage: 90 MG, 0.5 DF, ONCE

REACTIONS (3)
  - Somnolence [Unknown]
  - Product advertising issue [Unknown]
  - Incorrect dose administered [Unknown]
